FAERS Safety Report 6930389-0 (Version None)
Quarter: 2010Q3

REPORT INFORMATION
  Report Type: 
  Country: None (occurrence: None)
  Receive Date: 20100818
  Receipt Date: 20100816
  Transmission Date: 20110219
  Serious: Yes (Death, Life-Threatening, Hospitalization, Disabling, Other)
  Sender: FDA-Public Use
  Company Number: US-ABBOTT-10P-163-0663722-00

PATIENT
  Age: 60 Year
  Sex: Male
  Weight: 63.106 kg

DRUGS (38)
  1. RITONAVIR [Suspect]
     Indication: HIV INFECTION
     Dates: start: 20060812, end: 20070626
  2. RITONAVIR [Suspect]
     Dates: start: 20070705, end: 20070714
  3. CLARITHROMYCIN [Suspect]
     Indication: MYCOBACTERIUM AVIUM COMPLEX INFECTION
     Route: 048
     Dates: start: 20070607, end: 20070714
  4. MK-0518 [Suspect]
     Indication: HIV INFECTION
     Route: 048
     Dates: start: 20070615, end: 20070626
  5. FLUCONAZOLE [Suspect]
     Indication: ORAL CANDIDIASIS
     Route: 048
     Dates: start: 20070605, end: 20070714
  6. ZIDOVUDINE [Suspect]
     Indication: HIV INFECTION
     Route: 065
     Dates: start: 20060812, end: 20070615
  7. EMTRICITABINE [Suspect]
     Indication: HIV INFECTION
     Route: 065
     Dates: start: 20060812, end: 20070615
  8. ATAZANAVIR [Suspect]
     Indication: HIV INFECTION
     Route: 065
     Dates: start: 20060812, end: 20070615
  9. DARUNAVIR [Suspect]
     Indication: HIV INFECTION
     Route: 065
     Dates: start: 20070615, end: 20070626
  10. DARUNAVIR [Suspect]
     Route: 065
     Dates: start: 20070705, end: 20070714
  11. DIDANOSINE [Suspect]
     Indication: HIV INFECTION
     Route: 065
     Dates: start: 20070616, end: 20070626
  12. DIDANOSINE [Suspect]
     Route: 065
     Dates: start: 20070705, end: 20070714
  13. NEPHROCAPS [Concomitant]
     Indication: PRODUCT USED FOR UNKNOWN INDICATION
     Dates: start: 20070620, end: 20070717
  14. VICODIN [Concomitant]
     Indication: PRODUCT USED FOR UNKNOWN INDICATION
     Dates: start: 20070602, end: 20070714
  15. ACETYLCYSTEINE [Concomitant]
     Indication: PRODUCT USED FOR UNKNOWN INDICATION
     Dates: start: 20070612, end: 20070613
  16. ALPROSTADIL (+) PAPAVERINE HYDRO [Concomitant]
     Indication: PRODUCT USED FOR UNKNOWN INDICATION
     Dates: start: 20070605, end: 20070714
  17. CITALOPRAM HYDROBROMIDE [Concomitant]
     Indication: PRODUCT USED FOR UNKNOWN INDICATION
     Dates: start: 20070602, end: 20070714
  18. DAPSONE [Concomitant]
     Indication: PRODUCT USED FOR UNKNOWN INDICATION
     Dates: start: 20070605, end: 20070714
  19. DRONABINOL [Concomitant]
     Indication: PRODUCT USED FOR UNKNOWN INDICATION
     Dates: start: 20070602, end: 20070714
  20. EPOETIN [Concomitant]
     Indication: PRODUCT USED FOR UNKNOWN INDICATION
     Dates: start: 20070615, end: 20070714
  21. ETHAMBUTOL HYDROCHLORIDE [Concomitant]
     Indication: PRODUCT USED FOR UNKNOWN INDICATION
     Dates: start: 20070607, end: 20070714
  22. LEUCOVORIN CALCIUM [Concomitant]
     Indication: PRODUCT USED FOR UNKNOWN INDICATION
     Dates: start: 20070616, end: 20070714
  23. LEVOGLUTAMIDE [Concomitant]
     Indication: PRODUCT USED FOR UNKNOWN INDICATION
     Dates: start: 20070618, end: 20070714
  24. LORAZEPAM [Concomitant]
     Indication: PRODUCT USED FOR UNKNOWN INDICATION
     Dates: start: 20070613, end: 20070714
  25. METOPROLOL SUCCINATE [Concomitant]
     Indication: PRODUCT USED FOR UNKNOWN INDICATION
     Dates: start: 20070602, end: 20070714
  26. MORPHINE [Concomitant]
     Indication: PRODUCT USED FOR UNKNOWN INDICATION
     Dates: start: 20070606, end: 20070714
  27. OCTREOTIDE ACETATE [Concomitant]
     Indication: PRODUCT USED FOR UNKNOWN INDICATION
     Dates: start: 20070614, end: 20070714
  28. OMEPRAZOLE [Concomitant]
     Indication: PRODUCT USED FOR UNKNOWN INDICATION
     Dates: start: 20070619, end: 20070714
  29. OXANDROLONE [Concomitant]
     Indication: PRODUCT USED FOR UNKNOWN INDICATION
     Dates: start: 20070615, end: 20070714
  30. OXYBUTYNIN [Concomitant]
     Indication: PRODUCT USED FOR UNKNOWN INDICATION
     Dates: start: 20070607, end: 20070714
  31. PYRIDOXINE HCL [Concomitant]
     Indication: PRODUCT USED FOR UNKNOWN INDICATION
     Dates: start: 20070602, end: 20070714
  32. PYRIMETHAMINE [Concomitant]
     Indication: PRODUCT USED FOR UNKNOWN INDICATION
     Dates: start: 20070605, end: 20070714
  33. RANITIDINE [Concomitant]
     Indication: PRODUCT USED FOR UNKNOWN INDICATION
     Dates: start: 20070607, end: 20070714
  34. RIFABUTIN [Concomitant]
     Indication: PRODUCT USED FOR UNKNOWN INDICATION
     Dates: start: 20070607, end: 20070714
  35. SARGRAMOSTIM [Concomitant]
     Indication: PRODUCT USED FOR UNKNOWN INDICATION
     Dates: start: 20070608, end: 20070714
  36. TAMSULOSIN HYDROCHLORIDE [Concomitant]
     Indication: PRODUCT USED FOR UNKNOWN INDICATION
     Dates: start: 20070603, end: 20070714
  37. TESTOSTERONE [Concomitant]
     Indication: PRODUCT USED FOR UNKNOWN INDICATION
     Dates: start: 20070616, end: 20070714
  38. ZINC [Concomitant]
     Indication: PRODUCT USED FOR UNKNOWN INDICATION
     Dates: start: 20070617, end: 20070714

REACTIONS (15)
  - ANAEMIA [None]
  - BRADYCARDIA [None]
  - CARDIOGENIC SHOCK [None]
  - CONVULSION [None]
  - ELECTROCARDIOGRAM ST SEGMENT ELEVATION [None]
  - GRAND MAL CONVULSION [None]
  - IMMUNE RECONSTITUTION SYNDROME [None]
  - LEUKOENCEPHALOPATHY [None]
  - MENINGITIS BACTERIAL [None]
  - MENTAL STATUS CHANGES [None]
  - MYCOBACTERIUM AVIUM COMPLEX INFECTION [None]
  - MYOCARDIAL INFARCTION [None]
  - TONGUE BITING [None]
  - UNRESPONSIVE TO STIMULI [None]
  - VENTRICULAR FIBRILLATION [None]
